FAERS Safety Report 12680499 (Version 1)
Quarter: 2016Q3

REPORT INFORMATION
  Report Type: Spontaneous
  Country: US (occurrence: US)
  Receive Date: 20160824
  Receipt Date: 20160824
  Transmission Date: 20161109
  Serious: No
  Sender: FDA-Public Use
  Company Number: US-CELGENEUS-USA-2016084459

PATIENT
  Sex: Male

DRUGS (3)
  1. DICOFENAC [Concomitant]
     Indication: OSTEOARTHRITIS
     Route: 065
     Dates: end: 201608
  2. OTEZLA [Suspect]
     Active Substance: APREMILAST
     Indication: PSORIATIC ARTHROPATHY
     Dosage: 60 MILLIGRAM
     Route: 048
     Dates: start: 2014, end: 201608
  3. DICOFENAC [Concomitant]
     Indication: TENDONITIS

REACTIONS (2)
  - Tinnitus [Unknown]
  - Tendonitis [Unknown]

NARRATIVE: CASE EVENT DATE: 2016
